FAERS Safety Report 8776750 (Version 1)
Quarter: 2012Q4

REPORT INFORMATION
  Report Type: 
  Country: MX (occurrence: MX)
  Receive Date: 20120908
  Receipt Date: 20120908
  Transmission Date: 20130627
  Serious: Yes (Death)
  Sender: FDA-Public Use
  Company Number: PHHY2012MX078167

PATIENT
  Age: 74 Year
  Sex: Female

DRUGS (1)
  1. ALISKIREN HEMIFUMARATE\HYDROCHLOROTHIAZIDE [Suspect]
     Dosage: 300 mg alis and 12.5 mg HCT

REACTIONS (2)
  - Cardiac failure [Fatal]
  - Kidney infection [Fatal]
